FAERS Safety Report 17766385 (Version 1)
Quarter: 2020Q2

REPORT INFORMATION
  Report Type: Spontaneous
  Country: FR (occurrence: FR)
  Receive Date: 20200511
  Receipt Date: 20200511
  Transmission Date: 20200714
  Serious: Yes (Other)
  Sender: FDA-Public Use
  Company Number: FR-ACCORD-181285

PATIENT
  Age: 76 Year
  Sex: Female

DRUGS (14)
  1. PREGABALIN. [Concomitant]
     Active Substance: PREGABALIN
     Route: 048
  2. OXYCODONE/OXYCODONE HYDROCHLORIDE/OXYCODONE PECTINATE/OXYCODONE TEREPHTHALATE [Concomitant]
     Active Substance: OXYCODONE
     Route: 048
  3. LAROXYL [Concomitant]
     Active Substance: AMITRIPTYLINE HYDROCHLORIDE
     Dosage: STRENGTH: 40 MG/ML, ORAL SOLUTION
     Route: 048
  4. PRINCI B [Concomitant]
     Route: 048
  5. LANSOPRAZOLE. [Concomitant]
     Active Substance: LANSOPRAZOLE
     Route: 048
  6. FUNGIZONE [Concomitant]
     Active Substance: AMPHOTERICIN B
     Dosage: STRENGTH: 10 PERCENT, ORAL SUSPENSION
     Route: 048
  7. OXYCONTIN [Concomitant]
     Active Substance: OXYCODONE HYDROCHLORIDE
     Dosage: STENGTH: 10 MG, EXTENDED-RELEASE FILM-COATED TABLET
     Route: 048
  8. FOLINORAL [Concomitant]
     Active Substance: LEUCOVORIN CALCIUM
     Dosage: STRENGTH: 25 MG
     Route: 048
  9. INNOHEP [Concomitant]
     Active Substance: TINZAPARIN SODIUM
     Route: 058
  10. CARBOPLATIN. [Suspect]
     Active Substance: CARBOPLATIN
     Indication: SMALL CELL LUNG CANCER METASTATIC
     Dosage: NOT SPECIFIED
     Dates: start: 201909, end: 202001
  11. ETOPOSIDE. [Suspect]
     Active Substance: ETOPOSIDE
     Indication: SMALL CELL LUNG CANCER METASTATIC
     Dosage: NOT SPECIFIED
     Dates: start: 201909, end: 202001
  12. TRANSIPEG [Concomitant]
     Dosage: STRENGTH: 5.9 G, POWDER FOR ORAL SOLUTION IN SACHET
     Route: 048
  13. PROLIA [Concomitant]
     Active Substance: DENOSUMAB
     Route: 065
  14. PREDNISOLONE. [Concomitant]
     Active Substance: PREDNISOLONE

REACTIONS (2)
  - Optic neuropathy [Not Recovered/Not Resolved]
  - Visual acuity reduced transiently [Not Recovered/Not Resolved]

NARRATIVE: CASE EVENT DATE: 201912
